FAERS Safety Report 7461292-8 (Version None)
Quarter: 2011Q2

REPORT INFORMATION
  Report Type: 
  Country: None (occurrence: None)
  Receive Date: 20110506
  Receipt Date: 20110428
  Transmission Date: 20111010
  Serious: No
  Sender: FDA-Public Use
  Company Number: US-BIOGENIDEC-2011BI007342

PATIENT
  Sex: Male

DRUGS (3)
  1. AVONEX [Concomitant]
     Indication: MULTIPLE SCLEROSIS
     Route: 030
     Dates: start: 20080515
  2. TYSABRI [Suspect]
     Indication: MULTIPLE SCLEROSIS
     Route: 042
     Dates: start: 20100507
  3. AVONEX [Concomitant]
     Route: 030

REACTIONS (6)
  - ANAEMIA [None]
  - MUSCULAR WEAKNESS [None]
  - VITAMIN B12 ABNORMAL [None]
  - FATIGUE [None]
  - MOBILITY DECREASED [None]
  - ASTHENIA [None]
